FAERS Safety Report 6714106 (Version 3)
Quarter: 2019Q1

REPORT INFORMATION
  Report Type: Spontaneous
  Country: GB (occurrence: GB)
  Receive Date: 20080730
  Receipt Date: 20190109
  Transmission Date: 20190418
  Serious: Yes (Death, Life-Threatening, Hospitalization)
  Sender: FDA-Public Use
  Company Number: GB-TEVA-174880ISR

PATIENT
  Age: 61 Year
  Sex: Female
  Weight: 100 kg

DRUGS (2)
  1. CLOMIPRAMINE [Suspect]
     Active Substance: CLOMIPRAMINE
     Indication: DEPRESSION
     Dosage: 150 MILLIGRAM DAILY;
     Route: 048
     Dates: end: 20060920
  2. METHYLTHIONINIUM CHLORIDE [Interacting]
     Active Substance: METHYLENE BLUE
     Indication: PARATHYROID TUMOUR
     Dosage: STAT - DOSAGE 600MG
     Route: 042
     Dates: start: 20060920, end: 20060920

REACTIONS (10)
  - Hypotension [Fatal]
  - Multiple organ dysfunction syndrome [Fatal]
  - Hypertonia [Fatal]
  - Diabetes insipidus [Fatal]
  - Clonus [Fatal]
  - Drug interaction [Fatal]
  - Loss of consciousness [Fatal]
  - Cerebral disorder [Fatal]
  - Seizure [Fatal]
  - Serotonin syndrome [Fatal]

NARRATIVE: CASE EVENT DATE: 20060920
